FAERS Safety Report 20903766 (Version 2)
Quarter: 2022Q3

REPORT INFORMATION
  Report Type: Spontaneous
  Country: JP (occurrence: JP)
  Receive Date: 20220602
  Receipt Date: 20220907
  Transmission Date: 20221027
  Serious: Yes (Other)
  Sender: FDA-Public Use
  Company Number: JP-JNJFOC-20220561866

PATIENT
  Age: 38 Year
  Sex: Female

DRUGS (3)
  1. OPSUMIT [Suspect]
     Active Substance: MACITENTAN
     Indication: Pulmonary arterial hypertension
     Dosage: MACITENTAN:10MG
     Route: 048
  2. EPOPROSTENOL [Suspect]
     Active Substance: EPOPROSTENOL
     Indication: Pulmonary arterial hypertension
     Dosage: EPOPROSTENOL SODIUM:1.593MG
     Route: 041
  3. RIOCIGUAT [Concomitant]
     Active Substance: RIOCIGUAT
     Dosage: DOSE UNKNOWN
     Route: 048

REACTIONS (3)
  - Mediastinal abscess [Unknown]
  - Right ventricular failure [Unknown]
  - Haematoma [Unknown]
